FAERS Safety Report 9330702 (Version 1)
Quarter: 2013Q2

REPORT INFORMATION
  Report Type: Spontaneous
  Country: PT (occurrence: PT)
  Receive Date: 20130605
  Receipt Date: 20130605
  Transmission Date: 20140414
  Serious: Yes (Hospitalization, Other)
  Sender: FDA-Public Use
  Company Number: PT-009507513-1306PRT000148

PATIENT
  Age: 79 Year
  Sex: Female

DRUGS (16)
  1. FOSAMAX [Suspect]
     Indication: OSTEOPOROSIS
  2. AIRTAL [Concomitant]
  3. ANAFRANIL [Concomitant]
  4. BETASERC [Concomitant]
  5. GLUCOPHAGE [Concomitant]
  6. LESCOL [Concomitant]
  7. THYRAX [Concomitant]
  8. TRYPTIZOL [Concomitant]
  9. XANAX [Concomitant]
  10. MIGRETIL [Concomitant]
  11. SOLEXA [Concomitant]
  12. NITROMINT [Concomitant]
  13. COAPROVEL [Concomitant]
  14. KESTINE [Concomitant]
  15. ZINASEN [Concomitant]
  16. NORVASC [Concomitant]

REACTIONS (1)
  - Femur fracture [Recovering/Resolving]
